FAERS Safety Report 21338804 (Version 1)
Quarter: 2022Q3

REPORT INFORMATION
  Report Type: Report from Study
  Country: IT (occurrence: IT)
  Receive Date: 20220915
  Receipt Date: 20220915
  Transmission Date: 20221027
  Serious: Yes (Other)
  Sender: FDA-Public Use
  Company Number: None

PATIENT
  Age: 59 Year
  Sex: Female

DRUGS (3)
  1. INLYTA [Suspect]
     Active Substance: AXITINIB
     Indication: Renal cancer stage IV
     Dosage: 1 MG, 1X/DAY
     Route: 048
     Dates: start: 20210429, end: 20211027
  2. INLYTA [Suspect]
     Active Substance: AXITINIB
     Indication: Renal cancer stage IV
  3. AMLODIPINE [Concomitant]
     Active Substance: AMLODIPINE BESYLATE
     Dosage: 5 MG, 1X/DAY
     Route: 048

REACTIONS (10)
  - Hypertransaminasaemia [Recovering/Resolving]
  - Blood bilirubin increased [Recovering/Resolving]
  - Blood alkaline phosphatase increased [Unknown]
  - Blood lactate dehydrogenase increased [Unknown]
  - Gamma-glutamyltransferase increased [Unknown]
  - Anal fissure [Unknown]
  - Tongue erythema [Unknown]
  - Petechiae [Unknown]
  - Skin toxicity [Unknown]
  - Skin mass [Unknown]

NARRATIVE: CASE EVENT DATE: 20210622
